FAERS Safety Report 21736796 (Version 1)
Quarter: 2022Q4

REPORT INFORMATION
  Report Type: Spontaneous
  Country: FR (occurrence: FR)
  Receive Date: 20221216
  Receipt Date: 20221216
  Transmission Date: 20230113
  Serious: Yes (Hospitalization)
  Sender: FDA-Public Use
  Company Number: FR-STRIDES ARCOLAB LIMITED-2022SP016885

PATIENT
  Age: 41 Year
  Sex: Male

DRUGS (2)
  1. METHOTREXATE [Suspect]
     Active Substance: METHOTREXATE
     Indication: Pulmonary sarcoidosis
     Dosage: 15 MILLIGRAM, ONCE A WEEK
     Route: 065
  2. LEUCOVORIN [Concomitant]
     Active Substance: LEUCOVORIN
     Indication: Pulmonary sarcoidosis
     Dosage: 0.4 MILLIGRAM PER DAY
     Route: 065

REACTIONS (7)
  - Interstitial lung disease [Recovered/Resolved]
  - COVID-19 [Recovered/Resolved]
  - H1N1 influenza [Recovered/Resolved]
  - Candida infection [Unknown]
  - Pneumonia klebsiella [Unknown]
  - Enterococcal infection [Unknown]
  - Off label use [Unknown]
